FAERS Safety Report 9808693 (Version 1)
Quarter: 2014Q1

REPORT INFORMATION
  Report Type: Spontaneous
  Country: US (occurrence: US)
  Receive Date: 20140110
  Receipt Date: 20140110
  Transmission Date: 20141002
  Serious: Yes (Hospitalization, Other)
  Sender: FDA-Public Use
  Company Number: US-B.I. PHARMACEUTICALS,INC./RIDGEFIELD-2014-BI-00768BP

PATIENT
  Sex: Female
  Weight: 61 kg

DRUGS (5)
  1. MICARDIS HCT [Suspect]
     Indication: HYPERTENSION
     Dosage: STRENGTH: 80 MG / 12.5 MG; DAILY DOSE: 80MG/12.5MG
     Route: 048
     Dates: start: 2009, end: 201310
  2. FLEXERIL [Concomitant]
     Indication: MUSCLE SPASMS
     Dosage: 10 MG
     Route: 048
  3. TYLENOL [Concomitant]
     Indication: BACK PAIN
     Dosage: 650 MG
     Route: 048
  4. TYLENOL [Concomitant]
     Indication: ARTHRALGIA
  5. NEXIUM [Concomitant]
     Indication: GASTROOESOPHAGEAL REFLUX DISEASE
     Dosage: 40 MG
     Route: 048

REACTIONS (2)
  - Renal impairment [Not Recovered/Not Resolved]
  - Plasma cell myeloma [Not Recovered/Not Resolved]
